FAERS Safety Report 11411091 (Version 1)
Quarter: 2015Q3

REPORT INFORMATION
  Report Type: Spontaneous
  Country: US (occurrence: US)
  Receive Date: 20150821
  Receipt Date: 20150821
  Transmission Date: 20151125
  Serious: No
  Sender: FDA-Public Use
  Company Number: US-ELI_LILLY_AND_COMPANY-US201003003781

PATIENT
  Sex: Female

DRUGS (3)
  1. HUMULIN N [Suspect]
     Active Substance: INSULIN HUMAN
     Indication: DIABETES MELLITUS
     Dosage: 6 U, DAILY (1/D)
     Dates: start: 2009
  2. LIPASE [Concomitant]
     Active Substance: LIPASE
  3. ZOCOR [Concomitant]
     Active Substance: SIMVASTATIN

REACTIONS (2)
  - Blood cholesterol increased [Not Recovered/Not Resolved]
  - Hypoacusis [Not Recovered/Not Resolved]
